FAERS Safety Report 10146367 (Version 1)
Quarter: 2014Q2

REPORT INFORMATION
  Report Type: Spontaneous
  Country: FR (occurrence: None)
  Receive Date: 20140429
  Receipt Date: 20140429
  Transmission Date: 20141212
  Serious: Yes (Hospitalization)
  Sender: FDA-Public Use
  Company Number: AXC-2014-000287

PATIENT
  Age: 47 Year
  Sex: Female

DRUGS (2)
  1. PYLERA (BISMUTH SUBCITRATE POTASSIUM, METRONIDAZOLE, TETRACYCLINE HYDROCHLORIDE) CAPSULE [Suspect]
     Indication: HELICOBACTER GASTRITIS
     Route: 048
     Dates: start: 20140405, end: 20140407
  2. PANTOL (PANTOPRAZOLE) [Concomitant]

REACTIONS (4)
  - Colitis [None]
  - Back pain [None]
  - Faeces discoloured [None]
  - Off label use [None]
